FAERS Safety Report 6428320-X (Version None)
Quarter: 2009Q4

REPORT INFORMATION
  Report Type: 
  Country: None (occurrence: None)
  Receive Date: 20091105
  Receipt Date: 20091030
  Transmission Date: 20100525
  Serious: Yes (Death, Life-Threatening, Hospitalization)
  Sender: FDA-Public Use
  Company Number: JP-BAYER-200912992BYL

PATIENT
  Age: 54 Year
  Sex: Male
  Weight: 54 kg

DRUGS (10)
  1. NEXAVAR [Suspect]
     Indication: HEPATIC NEOPLASM MALIGNANT
     Dosage: TOTAL DAILY DOSE: 800 MG  UNIT DOSE: 200 MG
     Route: 048
     Dates: start: 20090805, end: 20090819
  2. NEXAVAR [Suspect]
     Dosage: UNIT DOSE: 200 MG
     Route: 048
     Dates: start: 20090909, end: 20090910
  3. NEXAVAR [Suspect]
     Dosage: UNIT DOSE: 200 MG
     Route: 048
     Dates: start: 20090910, end: 20091020
  4. GASTER D [Concomitant]
     Indication: HEPATIC NEOPLASM MALIGNANT
     Dosage: UNIT DOSE: 20 MG
     Route: 048
     Dates: start: 20090805
  5. VOLTAREN [Concomitant]
     Indication: HEPATIC NEOPLASM MALIGNANT
     Dosage: UNIT DOSE: 25 MG
     Route: 048
     Dates: start: 20090805
  6. KERATINAMIN [Concomitant]
     Indication: PROPHYLAXIS
     Route: 065
     Dates: start: 20090805
  7. LASIX [Concomitant]
     Indication: HEPATIC NEOPLASM MALIGNANT
     Dosage: UNIT DOSE: 20 MG
     Route: 048
     Dates: start: 20090805
  8. ALDACTONE [Concomitant]
     Indication: HEPATIC NEOPLASM MALIGNANT
     Dosage: UNIT DOSE: 25 MG
     Route: 048
     Dates: start: 20090805
  9. HALCION [Concomitant]
     Indication: HEPATIC NEOPLASM MALIGNANT
     Dosage: UNIT DOSE: 0.25 MG
     Route: 048
  10. PARIET [Concomitant]
     Indication: HEPATIC NEOPLASM MALIGNANT
     Dosage: UNIT DOSE: 10 MG
     Route: 048

REACTIONS (4)
  - DIARRHOEA [None]
  - HEPATIC NEOPLASM MALIGNANT [None]
  - PYREXIA [None]
  - RASH [None]
